FAERS Safety Report 20255143 (Version 1)
Quarter: 2021Q4

REPORT INFORMATION
  Report Type: Spontaneous
  Country: DE (occurrence: DE)
  Receive Date: 20211230
  Receipt Date: 20211230
  Transmission Date: 20220303
  Serious: Yes (Life-Threatening, Other)
  Sender: FDA-Public Use
  Company Number: DE-DCGMA-21190704

PATIENT
  Age: 58 Year
  Sex: Female
  Weight: 90 kg

DRUGS (2)
  1. METFORMIN [Suspect]
     Active Substance: METFORMIN HYDROCHLORIDE
     Indication: Type 2 diabetes mellitus
     Dosage: 1000MILLIGRAM
     Route: 048
     Dates: start: 2004, end: 20210527
  2. EMPAGLIFLOZIN [Concomitant]
     Active Substance: EMPAGLIFLOZIN
     Indication: Type 2 diabetes mellitus
     Dosage: 10MILLIGRAM
     Dates: start: 2018, end: 20210527

REACTIONS (7)
  - Ketoacidosis [Recovered/Resolved]
  - Pain in extremity [Recovered/Resolved]
  - Lactic acidosis [Recovered/Resolved]
  - Nausea [Recovered/Resolved]
  - Renal injury [Recovered/Resolved]
  - Vomiting [Recovered/Resolved]
  - Hypoglycaemia [Recovered/Resolved]

NARRATIVE: CASE EVENT DATE: 20210527
